FAERS Safety Report 13549732 (Version 1)
Quarter: 2017Q2

REPORT INFORMATION
  Report Type: Spontaneous
  Country: US (occurrence: US)
  Receive Date: 20170515
  Receipt Date: 20170515
  Transmission Date: 20170830
  Serious: No
  Sender: FDA-Public Use
  Company Number: None

PATIENT
  Sex: Female

DRUGS (1)
  1. HUMIRA [Suspect]
     Active Substance: ADALIMUMAB
     Indication: POLYARTHRITIS
     Dosage: DOSE - 1 SYRINGE (40MG)
     Route: 058
     Dates: start: 20160822

REACTIONS (3)
  - Injection site reaction [None]
  - Injection site pruritus [None]
  - Injection site pain [None]
